FAERS Safety Report 5661965-3 (Version None)
Quarter: 2008Q2

REPORT INFORMATION
  Report Type: 
  Country: None (occurrence: None)
  Receive Date: 20080215
  Receipt Date: 20070814
  Transmission Date: 20081010
  Serious: Yes (Other)
  Sender: FDA-Public Use
  Company Number: WWISSUE-105

PATIENT
  Sex: Male

DRUGS (1)
  1. PREDNISONE TAB [Suspect]
     Indication: DERMATITIS CONTACT

REACTIONS (1)
  - IMMUNE SYSTEM DISORDER [None]
